FAERS Safety Report 5424656-X (Version None)
Quarter: 2007Q3

REPORT INFORMATION
  Report Type: 
  Country: None (occurrence: None)
  Receive Date: 20070822
  Receipt Date: 20070822
  Transmission Date: 20080115
  Serious: Yes (Life-Threatening)
  Sender: FDA-Public Use
  Company Number: None

PATIENT
  Age: 50 Year
  Sex: Male
  Weight: 100 kg

DRUGS (6)
  1. IMMUNE GLOBULIN INTRAVENOUS (HUMAN) [Suspect]
     Indication: ENCEPHALITIS
     Dosage: 100 GM IV QD X 2D
     Dates: start: 20070414, end: 20070415
  2. ASPIRIN [Concomitant]
  3. METOPROLOL SUCCINATE [Concomitant]
  4. INSULIN [Concomitant]
  5. ISOSORBIDE DINITRATE [Concomitant]
  6. HYDROCHLOROTHIAZIDE [Concomitant]

REACTIONS (4)
  - HYPOXIA [None]
  - INCORRECT DOSE ADMINISTERED [None]
  - INCORRECT DRUG ADMINISTRATION DURATION [None]
  - PULMONARY EMBOLISM [None]
